FAERS Safety Report 13724991 (Version 3)
Quarter: 2018Q3

REPORT INFORMATION
  Report Type: Report from Study
  Country: US (occurrence: US)
  Receive Date: 20170706
  Receipt Date: 20180928
  Transmission Date: 20181010
  Serious: Yes (Hospitalization, Other)
  Sender: FDA-Public Use
  Company Number: US-SA-2017SA095044

PATIENT
  Age: 44 Year
  Sex: Female

DRUGS (1)
  1. ALEMTUZUMAB [Suspect]
     Active Substance: ALEMTUZUMAB
     Indication: MULTIPLE SCLEROSIS
     Dosage: 12 MG,QD
     Route: 041
     Dates: start: 20170508, end: 20170512

REACTIONS (10)
  - Cytomegalovirus test positive [Unknown]
  - Tuberculosis liver [Recovered/Resolved]
  - Fatigue [Not Recovered/Not Resolved]
  - T-lymphocyte count decreased [Recovered/Resolved]
  - Pyrexia [Recovered/Resolved]
  - Hospitalisation [Recovered/Resolved]
  - Malaise [Not Recovered/Not Resolved]
  - Lymph node tuberculosis [Recovered/Resolved]
  - Laboratory test abnormal [Unknown]
  - Adverse drug reaction [Unknown]

NARRATIVE: CASE EVENT DATE: 2017
